FAERS Safety Report 6219756-0 (Version None)
Quarter: 2009Q2

REPORT INFORMATION
  Report Type: 
  Country: None (occurrence: None)
  Receive Date: 20090609
  Receipt Date: 20090601
  Transmission Date: 20091009
  Serious: Yes (Other)
  Sender: FDA-Public Use
  Company Number: A0755596A

PATIENT
  Sex: Female
  Weight: 65.9 kg

DRUGS (2)
  1. COREG CR [Suspect]
     Indication: HYPERTENSION
     Dosage: 20MG PER DAY
     Route: 048
  2. DIOVAN [Concomitant]

REACTIONS (5)
  - CONFUSIONAL STATE [None]
  - DISTURBANCE IN ATTENTION [None]
  - FEELING ABNORMAL [None]
  - FEELING DRUNK [None]
  - LOSS OF CONSCIOUSNESS [None]
